FAERS Safety Report 5305976-6 (Version None)
Quarter: 2007Q2

REPORT INFORMATION
  Report Type: 
  Country: None (occurrence: None)
  Receive Date: 20070424
  Receipt Date: 20070413
  Transmission Date: 20071010
  Serious: Yes (Other)
  Sender: FDA-Public Use
  Company Number: CH-BRISTOL-MYERS SQUIBB COMPANY-13756515

PATIENT
  Age: 39 Year
  Sex: Female

DRUGS (9)
  1. EFAVIRENZ [Suspect]
     Indication: HIV INFECTION
     Route: 048
  2. COMBIVIR [Suspect]
     Indication: HIV INFECTION
     Route: 048
  3. RISPERDAL [Suspect]
     Route: 048
  4. EFFEXOR [Concomitant]
  5. TRUXAL [Concomitant]
  6. SERESTA [Concomitant]
  7. BECOZYME [Concomitant]
  8. SELIPRAN [Concomitant]
  9. METHADONE HCL [Concomitant]

REACTIONS (2)
  - HEPATIC STEATOSIS [None]
  - HYPERTRIGLYCERIDAEMIA [None]
